FAERS Safety Report 7971609-3 (Version None)
Quarter: 2011Q4

REPORT INFORMATION
  Report Type: 
  Country: None (occurrence: None)
  Receive Date: 20111212
  Receipt Date: 20111201
  Transmission Date: 20120403
  Serious: Yes (Other)
  Sender: FDA-Public Use
  Company Number: US-ASTRAZENECA-2011SE68548

PATIENT
  Age: 46 Year
  Sex: Male

DRUGS (1)
  1. SEROQUEL [Suspect]
     Indication: HUNTINGTON'S DISEASE
     Route: 048

REACTIONS (1)
  - OFF LABEL USE [None]
